FAERS Safety Report 17071792 (Version 1)
Quarter: 2019Q4

REPORT INFORMATION
  Report Type: Report from Study
  Country: IT (occurrence: IT)
  Receive Date: 20191125
  Receipt Date: 20191125
  Transmission Date: 20200122
  Serious: Yes (Other)
  Sender: FDA-Public Use
  Company Number: IT-PFIZER INC-2019502397

PATIENT
  Age: 51 Year
  Sex: Female

DRUGS (2)
  1. OLANZAPINE PAMOATE [Concomitant]
     Active Substance: OLANZAPINE PAMOATE
     Dosage: UNK
  2. XANAX [Suspect]
     Active Substance: ALPRAZOLAM
     Indication: DEPRESSION
     Dosage: 4 MG, 1X/DAY
     Route: 048
     Dates: start: 20190918, end: 20190918

REACTIONS (4)
  - Overdose [Recovering/Resolving]
  - Sopor [Recovering/Resolving]
  - Dysarthria [Recovering/Resolving]
  - Drug abuse [Recovering/Resolving]

NARRATIVE: CASE EVENT DATE: 20190919
